FAERS Safety Report 7403059-2 (Version None)
Quarter: 2011Q1

REPORT INFORMATION
  Report Type: 
  Country: None (occurrence: None)
  Receive Date: 20110316
  Receipt Date: 20110303
  Transmission Date: 20110831
  Serious: Yes (Death, Hospitalization)
  Sender: FDA-Public Use
  Company Number: WSDF_00765

PATIENT
  Age: 81 Year
  Sex: Female

DRUGS (3)
  1. METHYLPREDNISOLONE [Concomitant]
  2. IRON [Concomitant]
  3. WINRHO SDF LIQUID [Suspect]
     Indication: IDIOPATHIC THROMBOCYTOPENIC PURPURA
     Dosage: (4000 UG INTRAVENOUS (NOT OTHERWISE SPECIFIED)
     Route: 042

REACTIONS (10)
  - HAEMOLYSIS [None]
  - PNEUMONIA ASPIRATION [None]
  - EMBOLIC STROKE [None]
  - CARDIO-RESPIRATORY ARREST [None]
  - CEREBRAL ATROPHY [None]
  - BRAIN STEM SYNDROME [None]
  - THROMBOTIC THROMBOCYTOPENIC PURPURA [None]
  - STATUS EPILEPTICUS [None]
  - CEREBRAL HAEMORRHAGE [None]
  - CEREBRAL SMALL VESSEL ISCHAEMIC DISEASE [None]
